FAERS Safety Report 18509551 (Version 2)
Quarter: 2020Q4

REPORT INFORMATION
  Report Type: Report from Study
  Country: US (occurrence: KR)
  Receive Date: 20201117
  Receipt Date: 20201204
  Transmission Date: 20210114
  Serious: Yes (Other)
  Sender: FDA-Public Use
  Company Number: US-REGENERON PHARMACEUTICALS, INC.-2020-88800

PATIENT

DRUGS (2)
  1. CEMIPLIMAB [Suspect]
     Active Substance: CEMIPLIMAB
     Indication: RENAL CELL CARCINOMA
     Dosage: UNK UNK, Q3W
     Route: 042
  2. PEXASTIMOGENE DEVACIREPVEC (PEXA-VEC) [Suspect]
     Active Substance: PEXASTIMOGENE DEVACIREPVEC
     Indication: RENAL CELL CARCINOMA
     Dosage: 3 X 10^8 PFU, QW, FOR 4 TREATMENTS
     Route: 042

REACTIONS (1)
  - Pulmonary tuberculosis [Unknown]
